FAERS Safety Report 24566339 (Version 1)
Quarter: 2024Q4

REPORT INFORMATION
  Report Type: Spontaneous
  Country: TR (occurrence: TR)
  Receive Date: 20241030
  Receipt Date: 20241030
  Transmission Date: 20250115
  Serious: Yes (Hospitalization)
  Sender: PERRIGO
  Company Number: TR-MLMSERVICE-20241015-PI228052-00029-1

PATIENT
  Age: 33 Month
  Sex: Female

DRUGS (4)
  1. ACETAMINOPHEN [Suspect]
     Active Substance: ACETAMINOPHEN
     Indication: Restlessness
     Dosage: 560 MG, HOME IN THE LAST 24 HOURS
     Route: 065
  2. CHLORPHENIRAMINE MALEATE [Suspect]
     Active Substance: CHLORPHENIRAMINE MALEATE
     Indication: Restlessness
     Dosage: 2 MG, HOME IN THE LAST 24 HOURS
     Route: 065
  3. IRON [Concomitant]
     Active Substance: IRON
     Indication: Prophylaxis
     Dosage: UNKNOWN, UNKNOWN
     Route: 065
  4. VITAMIN D NOS [Concomitant]
     Active Substance: CHOLECALCIFEROL\ERGOCALCIFEROL
     Indication: Prophylaxis
     Dosage: UNKNOWN, UNKNOWN
     Route: 065

REACTIONS (3)
  - Dystonia [Recovered/Resolved]
  - Oculogyric crisis [Recovered/Resolved]
  - Toxicity to various agents [Recovered/Resolved]
